FAERS Safety Report 7478237-7 (Version None)
Quarter: 2011Q2

REPORT INFORMATION
  Report Type: 
  Country: None (occurrence: None)
  Receive Date: 20110506
  Receipt Date: 20110418
  Transmission Date: 20111010
  Serious: Yes (Hospitalization)
  Sender: FDA-Public Use
  Company Number: JPI-P-014628

PATIENT
  Age: 45 Year
  Sex: Female

DRUGS (1)
  1. XYREM [Suspect]
     Indication: CATAPLEXY
     Dosage: ORAL 7 GM (3.5 GM, 2 IN 1 D), ORAL
     Route: 048
     Dates: start: 20080327

REACTIONS (17)
  - CHONDRITIS [None]
  - THROMBOSIS [None]
  - FEELING ABNORMAL [None]
  - GASTROOESOPHAGEAL REFLUX DISEASE [None]
  - INFLUENZA LIKE ILLNESS [None]
  - HIATUS HERNIA [None]
  - GASTRITIS [None]
  - GOITRE [None]
  - DYSPEPSIA [None]
  - WEIGHT DECREASED [None]
  - AUTOIMMUNE THYROIDITIS [None]
  - LYMPHADENOPATHY [None]
  - ABDOMINAL PAIN [None]
  - CHEST PAIN [None]
  - LYMPH NODE PAIN [None]
  - DYSPHAGIA [None]
  - NIGHT SWEATS [None]
